FAERS Safety Report 23180738 (Version 1)
Quarter: 2023Q4

REPORT INFORMATION
  Report Type: Spontaneous
  Country: GB (occurrence: GB)
  Receive Date: 20231114
  Receipt Date: 20231114
  Transmission Date: 20240110
  Serious: Yes (Other)
  Sender: FDA-Public Use
  Company Number: GB-SIEMENS HEALTHCARE LIMITED-PET-000051-2023

PATIENT
  Age: 64 Year
  Sex: Female
  Weight: 54.88 kg

DRUGS (5)
  1. FLUDEOXYGLUCOSE F-18 [Suspect]
     Active Substance: FLUDEOXYGLUCOSE F-18
     Indication: Follicular lymphoma
     Dosage: 399.3 MBQ
     Route: 042
     Dates: start: 20231024, end: 20231024
  2. SODIUM CHLORIDE [Suspect]
     Active Substance: SODIUM CHLORIDE
     Indication: Flushing
     Dosage: 30 ML
     Route: 042
     Dates: start: 20231024, end: 20231024
  3. THYROXINE [Concomitant]
     Active Substance: LEVOTHYROXINE
     Dosage: 150 MICROGRAM/DAY
     Route: 048
     Dates: start: 20231024, end: 20231024
  4. Estogen [Concomitant]
     Dosage: 3 PUMPS/DAY
     Route: 048
     Dates: start: 20231024, end: 20231024
  5. Perfectil [Concomitant]
     Dosage: 1 TABLET/DAY
     Route: 048
     Dates: start: 20231024, end: 20231024

REACTIONS (2)
  - Pruritus [Recovered/Resolved]
  - Rash [Recovered/Resolved]

NARRATIVE: CASE EVENT DATE: 20231024
